FAERS Safety Report 8959600 (Version 2)
Quarter: 2013Q1

REPORT INFORMATION
  Report Type: Spontaneous
  Country: SE (occurrence: SE)
  Receive Date: 20121212
  Receipt Date: 20130219
  Transmission Date: 20140127
  Serious: Yes (Other)
  Sender: FDA-Public Use
  Company Number: SE-MERCK-1212SWE003822

PATIENT
  Age: 77 Year
  Sex: Female

DRUGS (2)
  1. FOSAMAX [Suspect]
     Indication: OSTEOPOROSIS
     Dosage: UNK
     Dates: end: 20111231
  2. FOSAMAX [Suspect]
     Indication: PATHOLOGICAL FRACTURE

REACTIONS (1)
  - Pathological fracture [Unknown]
